FAERS Safety Report 7787262-8 (Version None)
Quarter: 2011Q3

REPORT INFORMATION
  Report Type: 
  Country: None (occurrence: None)
  Receive Date: 20110929
  Receipt Date: 20110919
  Transmission Date: 20111222
  Serious: Yes (Hospitalization, Other)
  Sender: FDA-Public Use
  Company Number: US-BAYER-200935648NA

PATIENT
  Age: 26 Year
  Sex: Female
  Weight: 88.435 kg

DRUGS (7)
  1. MIDRIN [Concomitant]
  2. METOPROLOL TARTRATE [Concomitant]
     Dosage: UNK
     Dates: start: 20071001
  3. PRIMACARE [Concomitant]
  4. BENADRYL [Concomitant]
  5. YAZ [Suspect]
     Indication: PREMENSTRUAL SYNDROME
  6. YAZ [Suspect]
     Indication: CONTRACEPTION
     Dosage: RECEIVED 3 SAMPLES FROM OB/GYN IN AUG 2006
     Route: 048
     Dates: start: 20070101, end: 20070701
  7. NAPROXEN [Concomitant]

REACTIONS (6)
  - BLINDNESS [None]
  - HEMIPLEGIC MIGRAINE [None]
  - CHOLECYSTECTOMY [None]
  - THROMBOSIS [None]
  - PULMONARY EMBOLISM [None]
  - CHOLECYSTITIS CHRONIC [None]
